FAERS Safety Report 4960428-8 (Version None)
Quarter: 2006Q2

REPORT INFORMATION
  Report Type: 
  Country: None (occurrence: None)
  Receive Date: 20060403
  Receipt Date: 20060321
  Transmission Date: 20061013
  Serious: Yes (Other)
  Sender: FDA-Public Use
  Company Number: PHEH2006US03747

PATIENT
  Age: 62 Year
  Sex: Male

DRUGS (1)
  1. SANDIMMUNE [Suspect]
     Indication: HISTOPLASMOSIS
     Dosage: 175 MG, BID
     Route: 048

REACTIONS (3)
  - CONFUSIONAL STATE [None]
  - HALLUCINATION, VISUAL [None]
  - MENTAL STATUS CHANGES [None]
